FAERS Safety Report 6088050-3 (Version None)
Quarter: 2009Q1

REPORT INFORMATION
  Report Type: 
  Country: None (occurrence: None)
  Receive Date: 20090218
  Receipt Date: 20090204
  Transmission Date: 20090719
  Serious: Yes (Other)
  Sender: FDA-Public Use
  Company Number: 230018K09CAN

PATIENT
  Sex: Female

DRUGS (1)
  1. REBIF [Suspect]
     Indication: MARBURG'S VARIANT MULTIPLE SCLEROSIS
     Dosage: 44 MCG, 3 IN 1 WEEKS, SUBCUTANEOUS
     Route: 058
     Dates: start: 20080905

REACTIONS (10)
  - ANXIETY [None]
  - ASTHENIA [None]
  - BURNING SENSATION [None]
  - CONDITION AGGRAVATED [None]
  - CONVULSION [None]
  - EYELID DISORDER [None]
  - FEELING ABNORMAL [None]
  - NAUSEA [None]
  - URINE ABNORMALITY [None]
  - VISUAL ACUITY REDUCED [None]
